FAERS Safety Report 20557366 (Version 1)
Quarter: 2022Q1

REPORT INFORMATION
  Report Type: Spontaneous
  Country: FR (occurrence: FR)
  Receive Date: 20220307
  Receipt Date: 20220307
  Transmission Date: 20220423
  Serious: Yes (Hospitalization, Congenital Anomaly, Other)
  Sender: FDA-Public Use
  Company Number: FR-ABBVIE-22K-056-4300441-00

PATIENT
  Sex: Male
  Weight: 2.93 kg

DRUGS (6)
  1. VALPROATE SODIUM [Suspect]
     Active Substance: VALPROATE SODIUM
     Indication: Maternal exposure timing unspecified
     Route: 064
  2. FOLIC ACID [Concomitant]
     Active Substance: FOLIC ACID
     Indication: Product used for unknown indication
  3. VITAMIN K [Concomitant]
     Active Substance: PHYTONADIONE
     Indication: Product used for unknown indication
  4. CELESTENE [Concomitant]
     Indication: Product used for unknown indication
  5. CHOLECALCIFEROL [Concomitant]
     Active Substance: CHOLECALCIFEROL
     Indication: Product used for unknown indication
     Dates: start: 20080527
  6. RHOPHYLAC [Concomitant]
     Active Substance: HUMAN RHO(D) IMMUNE GLOBULIN
     Indication: Product used for unknown indication

REACTIONS (69)
  - Foetal anticonvulsant syndrome [Unknown]
  - Congenital foot malformation [Unknown]
  - Speech sound disorder [Unknown]
  - Cardiac murmur [Unknown]
  - Cerebral palsy [Unknown]
  - Cranial sutures widening [Unknown]
  - Memory impairment [Unknown]
  - Dysgraphia [Unknown]
  - Extensor plantar response [Unknown]
  - Balance disorder [Unknown]
  - Congenital scoliosis [Unknown]
  - Affect lability [Unknown]
  - Night sweats [Unknown]
  - Agitation [Unknown]
  - Microcephaly [Unknown]
  - Visuospatial deficit [Unknown]
  - Encopresis [Unknown]
  - Attention deficit hyperactivity disorder [Unknown]
  - Plagiocephaly [Unknown]
  - Tachypnoea [Unknown]
  - Diplegia [Unknown]
  - Hypotonia neonatal [Unknown]
  - Eating disorder [Unknown]
  - Congenital laryngeal stridor [Unknown]
  - Hand deformity [Unknown]
  - Oropharyngeal discomfort [Unknown]
  - Gait spastic [Unknown]
  - Attention deficit hyperactivity disorder [Unknown]
  - Adenoidal hypertrophy [Unknown]
  - Speech disorder developmental [Unknown]
  - Mental disorder [Unknown]
  - Dyspraxia [Unknown]
  - Motor developmental delay [Unknown]
  - Gait disturbance [Unknown]
  - Developmental coordination disorder [Unknown]
  - Fatigue [Unknown]
  - Dysmorphism [Unknown]
  - Eating disorder [Unknown]
  - Executive dysfunction [Unknown]
  - Right ventricular enlargement [Unknown]
  - Pulmonary hypertension [Unknown]
  - Atrial septal defect [Unknown]
  - Congenital arterial malformation [Unknown]
  - Eyelid disorder [Unknown]
  - Anomaly of external ear congenital [Unknown]
  - Micrognathia [Unknown]
  - Respiratory disorder [Unknown]
  - Joint laxity [Unknown]
  - Ear disorder [Unknown]
  - Encopresis [Unknown]
  - Nasal disorder [Unknown]
  - Hypotonia neonatal [Unknown]
  - Learning disability [Unknown]
  - Laryngomalacia [Unknown]
  - Tachypnoea [Unknown]
  - Anger [Unknown]
  - Camptodactyly congenital [Unknown]
  - Gastrooesophageal reflux disease [Unknown]
  - Sleep disorder [Unknown]
  - Behaviour disorder [Unknown]
  - Enuresis [Unknown]
  - Anxiety [Unknown]
  - Aggression [Unknown]
  - Urinary incontinence [Unknown]
  - Disturbance in attention [Unknown]
  - Constipation [Unknown]
  - Diarrhoea [Unknown]
  - Disturbance in attention [Unknown]
  - Foetal exposure during pregnancy [Unknown]
